FAERS Safety Report 4662171-1 (Version None)
Quarter: 2005Q2

REPORT INFORMATION
  Report Type: 
  Country: None (occurrence: None)
  Receive Date: 20050512
  Receipt Date: 20050428
  Transmission Date: 20051028
  Serious: Yes (Hospitalization)
  Sender: FDA-Public Use
  Company Number: 2005BI005406

PATIENT
  Age: 51 Year
  Sex: Male

DRUGS (4)
  1. AVONEX [Suspect]
     Indication: MULTIPLE SCLEROSIS
     Dosage: IM
     Route: 030
     Dates: start: 20041202, end: 20050201
  2. CLONAZEPAM [Concomitant]
  3. ADALAT [Concomitant]
  4. CITALOPRAM [Concomitant]

REACTIONS (6)
  - DIFFICULTY IN WALKING [None]
  - FALL [None]
  - FOREARM FRACTURE [None]
  - HYPOAESTHESIA [None]
  - INJECTION SITE ATROPHY [None]
  - OEDEMA PERIPHERAL [None]
